FAERS Safety Report 8770813 (Version 2)
Quarter: 2012Q4

REPORT INFORMATION
  Report Type: 
  Country: US (occurrence: US)
  Receive Date: 20120906
  Receipt Date: 20121015
  Transmission Date: 20130627
  Serious: Yes (Other)
  Sender: FDA-Public Use
  Company Number: US-PFIZER INC-2012217334

PATIENT
  Age: 40 Year
  Sex: Female
  Weight: 103 kg

DRUGS (3)
  1. LYRICA [Suspect]
     Indication: FIBROMYALGIA
     Dosage: 150 mg, 2x/day
     Route: 048
     Dates: start: 2008, end: 201108
  2. LEVONORGESTREL W/ETHINYLESTRADIOL [Concomitant]
     Dosage: 25 mg, daily
  3. AMITIZA [Concomitant]
     Dosage: 08 ug, daily
     Route: 048

REACTIONS (7)
  - Multiple sclerosis [Unknown]
  - Arthritis [Unknown]
  - Irritable bowel syndrome [Unknown]
  - Chronic fatigue syndrome [Unknown]
  - Migraine [Unknown]
  - Depression [Unknown]
  - Pain [Unknown]
